FAERS Safety Report 8049055-6 (Version None)
Quarter: 2012Q1

REPORT INFORMATION
  Report Type: 
  Country: None (occurrence: None)
  Receive Date: 20120117
  Receipt Date: 20120109
  Transmission Date: 20120608
  Serious: Yes (Other)
  Sender: FDA-Public Use
  Company Number: US-BAYER-2010-002529

PATIENT
  Sex: Female

DRUGS (6)
  1. YAZ [Suspect]
     Indication: PRODUCT USED FOR UNKNOWN INDICATION
     Dosage: UNK
     Dates: start: 20090801, end: 20090901
  2. CETIRIZINE W/PSEUDOEPHEDRINE [Concomitant]
     Indication: NASAL CONGESTION
  3. HYDROCORTISONE-NEOMYCIN-POLYMYXIN B [Concomitant]
     Dosage: 1-2 DROPS TWICE DAILY TO RIGHT EAR FOR SEVEN DAYS
     Route: 001
     Dates: start: 20090726
  4. MONTELUKAST [Concomitant]
     Dosage: 10 MG-1 TABLET EVERY AFTERNOON
     Route: 048
     Dates: start: 20090727
  5. CETIRIZINE W/PSEUDOEPHEDRINE [Concomitant]
     Indication: MULTIPLE ALLERGIES
     Dosage: 5 MG/120 MG, 1 TABLET TWICE DAILY AS NEEDED
     Route: 048
     Dates: start: 20090727
  6. TWINRIX [Concomitant]
     Indication: ANTIVIRAL PROPHYLAXIS
     Dosage: 1 ML, TO LEFT DELTOID
     Route: 030
     Dates: start: 20090820

REACTIONS (3)
  - GALLBLADDER POLYP [None]
  - CHOLECYSTITIS CHRONIC [None]
  - GALLBLADDER INJURY [None]
